FAERS Safety Report 21063537 (Version 1)
Quarter: 2022Q3

REPORT INFORMATION
  Report Type: Spontaneous
  Country: US (occurrence: US)
  Receive Date: 20220711
  Receipt Date: 20220711
  Transmission Date: 20221026
  Serious: Yes (Death, Other)
  Sender: FDA-Public Use
  Company Number: US-CELGENE-USA-20220200248

PATIENT
  Age: 92 Year
  Sex: Female

DRUGS (1)
  1. REVLIMID [Suspect]
     Active Substance: LENALIDOMIDE
     Indication: Plasma cell myeloma
     Dosage: 15 MILLIGRAM, FOR 14 DAYS OF A 21 DAY CYCLE
     Route: 048
     Dates: start: 202112

REACTIONS (3)
  - Emotional distress [Recovered/Resolved]
  - Off label use [Unknown]
  - Death [Fatal]
